FAERS Safety Report 22335772 (Version 1)
Quarter: 2023Q2

REPORT INFORMATION
  Report Type: Spontaneous
  Country: US (occurrence: US)
  Receive Date: 20230518
  Receipt Date: 20230518
  Transmission Date: 20230721
  Serious: No
  Sender: FDA-Public Use
  Company Number: US-LEO Pharma-352019

PATIENT
  Sex: Male

DRUGS (1)
  1. ADBRY [Suspect]
     Active Substance: TRALOKINUMAB-LDRM
     Indication: Dermatitis atopic
     Dosage: DOSAGE : 300 MG EVERY TWO WEEKS SUBCUTANEOUSLY AFTER THE INITIAL DOSE
     Route: 058
     Dates: start: 202303

REACTIONS (2)
  - Eye pain [Unknown]
  - Ocular hyperaemia [Unknown]
